FAERS Safety Report 8958772 (Version 1)
Quarter: 2012Q4

REPORT INFORMATION
  Report Type: 
  Country: US (occurrence: US)
  Receive Date: 20121211
  Receipt Date: 20121211
  Transmission Date: 20130627
  Serious: Yes (Other)
  Sender: FDA-Public Use
  Company Number: US-INCYTE CORPORATION-2012IN001877

PATIENT
  Age: 70 None
  Sex: Male
  Weight: 86.7 kg

DRUGS (9)
  1. JAKAFI [Suspect]
     Indication: MYELOFIBROSIS
     Dosage: 20 mg, bid
     Route: 048
     Dates: start: 201204, end: 20120606
  2. JAKAFI [Suspect]
     Indication: SPLENOMEGALY
     Dosage: Not specified
     Route: 048
     Dates: start: 20120701
  3. PLAVIX [Concomitant]
     Dosage: 75 mg, UNK
  4. SIMVASTATIN [Concomitant]
     Dosage: 10 UNK, UNK
  5. ASPIRIN [Concomitant]
     Dosage: 325 UNK, UNK
  6. TOPROL [Concomitant]
     Dosage: 50 UNK, UNK
  7. NITROGLYCERIN [Concomitant]
  8. ISOSORBIDE [Concomitant]
     Dosage: 30 mg, UNK
  9. PANTOPRAZOLE [Concomitant]
     Dosage: 40 mg, UNK

REACTIONS (3)
  - Device occlusion [Recovered/Resolved]
  - Anaemia [Unknown]
  - Fatigue [Unknown]
